FAERS Safety Report 9217867 (Version 3)
Quarter: 2013Q2

REPORT INFORMATION
  Report Type: Spontaneous
  Country: IN (occurrence: IN)
  Receive Date: 20130408
  Receipt Date: 20130426
  Transmission Date: 20140414
  Serious: Yes (Hospitalization, Other)
  Sender: FDA-Public Use
  Company Number: PHHY2013IN032316

PATIENT
  Age: 61 Year
  Sex: Female

DRUGS (5)
  1. ACLASTA [Suspect]
     Indication: OSTEOPOROTIC FRACTURE
     Dosage: 5 MG
     Route: 042
     Dates: start: 20120411
  2. PYRIGESIC [Concomitant]
     Dosage: 1 G, UNK
  3. NEUROCAL PLUS [Concomitant]
     Dosage: UNK UKN, UNK
  4. ANTIHYPERTENSIVE DRUGS [Concomitant]
     Dosage: UNK UKN, UNK
  5. NEOCALMANS [Concomitant]
     Dosage: UNK UKN, UNK

REACTIONS (15)
  - Fall [Unknown]
  - Femur fracture [Unknown]
  - Fracture displacement [Unknown]
  - Vascular calcification [Unknown]
  - Arrhythmia [Unknown]
  - Blood pressure systolic increased [Unknown]
  - Blood urea increased [Unknown]
  - Tachycardia [Unknown]
  - Haematocrit decreased [Unknown]
  - Mean cell haemoglobin concentration decreased [Unknown]
  - Mean cell volume decreased [Unknown]
  - Haemoglobin decreased [Unknown]
  - Swelling [Unknown]
  - Pyrexia [Unknown]
  - Cough [Unknown]
